FAERS Safety Report 15487325 (Version 1)
Quarter: 2018Q4

REPORT INFORMATION
  Report Type: Spontaneous
  Country: US (occurrence: US)
  Receive Date: 20181003
  Receipt Date: 20181003
  Transmission Date: 20190205
  Serious: Yes (Other)
  Sender: FDA-Public Use
  Company Number: None

PATIENT
  Age: 34 Year
  Sex: Male

DRUGS (4)
  1. DEPAKOTE [Concomitant]
     Active Substance: DIVALPROEX SODIUM
  2. LEVETIRACETAM TAB 750MG ER [Suspect]
     Active Substance: LEVETIRACETAM
  3. DEPAKOTE DR TAB 250MG [Concomitant]
  4. DIVALPROEX TAB 250MG ER [Suspect]
     Active Substance: DIVALPROEX SODIUM

REACTIONS (2)
  - Product substitution issue [None]
  - Generalised tonic-clonic seizure [None]

NARRATIVE: CASE EVENT DATE: 20181002
